FAERS Safety Report 23211402 (Version 1)
Quarter: 2023Q4

REPORT INFORMATION
  Report Type: Report from Study
  Country: CA (occurrence: CA)
  Receive Date: 20231121
  Receipt Date: 20231121
  Transmission Date: 20240110
  Serious: Yes (Hospitalization)
  Sender: FDA-Public Use
  Company Number: CA-Eisai-EC-2023-153325

PATIENT
  Age: 73 Year
  Sex: Male

DRUGS (5)
  1. LENVIMA [Suspect]
     Active Substance: LENVATINIB
     Indication: Renal cell carcinoma
     Route: 048
     Dates: start: 20230923, end: 20230926
  2. LENVIMA [Suspect]
     Active Substance: LENVATINIB
     Route: 048
     Dates: start: 202309, end: 20231028
  3. ALFUZOSIN [Concomitant]
     Active Substance: ALFUZOSIN
  4. PANTOPRAZOLE [Concomitant]
     Active Substance: PANTOPRAZOLE
  5. LASIX [Concomitant]
     Active Substance: FUROSEMIDE

REACTIONS (3)
  - Aphasia [Recovering/Resolving]
  - Pulmonary oedema [Recovering/Resolving]
  - Peripheral swelling [Unknown]

NARRATIVE: CASE EVENT DATE: 20231001
